FAERS Safety Report 4880322-0 (Version None)
Quarter: 2006Q1

REPORT INFORMATION
  Report Type: 
  Country: None (occurrence: None)
  Receive Date: 20060113
  Receipt Date: 20020923
  Transmission Date: 20060701
  Serious: Yes (Hospitalization)
  Sender: FDA-Public Use
  Company Number: FR-ROCHE-322034

PATIENT
  Sex: Male
  Weight: 3.4 kg

DRUGS (5)
  1. INVIRASE [Suspect]
  2. ZERIT [Suspect]
  3. NORVIR [Suspect]
  4. VIDEX [Suspect]
  5. DIDANOSINE [Concomitant]
     Indication: HIV INFECTION

REACTIONS (6)
  - ANAEMIA [None]
  - CAESAREAN SECTION [None]
  - DRUG EXPOSURE DURING PREGNANCY [None]
  - HYPERTRIGLYCERIDAEMIA [None]
  - HYPOTONIA [None]
  - LARGE FOR DATES BABY [None]
